FAERS Safety Report 25675105 (Version 2)
Quarter: 2025Q4

REPORT INFORMATION
  Report Type: Other
  Country: IL (occurrence: IL)
  Receive Date: 20250813
  Receipt Date: 20251110
  Transmission Date: 20260117
  Serious: Yes (Hospitalization, Other)
  Sender: DEXCEL LTD.
  Company Number: IL-DEXPHARM-2025-4048

PATIENT
  Age: 70 Year
  Sex: Female

DRUGS (15)
  1. CYCLOSPORINE [Interacting]
     Active Substance: CYCLOSPORINE
  2. PREDNISONE [Concomitant]
     Active Substance: PREDNISONE
     Dosage: 5 MG, 2 TABS X 1/DAY
  3. MYCOPHENOLIC ACID [Interacting]
     Active Substance: MYCOPHENOLIC ACID
     Dosage: 360 MG, 1 TAB X 1 /DAY
  4. VALGANCICLOVIR HYDROCHLORIDE [Concomitant]
     Active Substance: VALGANCICLOVIR HYDROCHLORIDE
     Dosage: 450 MG, 1 TAB X 1 /DAY
  5. SULFAMETHOXAZOLE\TRIMETHOPRIM [Interacting]
     Active Substance: SULFAMETHOXAZOLE\TRIMETHOPRIM
     Dosage: 160 MG/800 MG, 1 TAB X 2 /WEEK
  6. FUROSEMIDE [Concomitant]
     Active Substance: FUROSEMIDE
     Dosage: 40 MG, 1 TAB X 1 /DAY
  7. ENTECAVIR [Concomitant]
     Active Substance: ENTECAVIR
     Dosage: 0.5 MG, 1 TAB X 1 /DAY
  8. APIXABAN [Concomitant]
     Active Substance: APIXABAN
     Dosage: 5 MG, 1 TAB X 2 /DAY
  9. ASPIRIN [Concomitant]
     Active Substance: ASPIRIN
     Dosage: 100 MG, 1 TAB X 1 /DAY
  10. DRONEDARONE [Interacting]
     Active Substance: DRONEDARONE
     Dosage: 400 MG, 1 TAB X 2 /DAY
  11. ESOMEPRAZOLE [Interacting]
     Active Substance: ESOMEPRAZOLE
     Dosage: 40 MG, 1 TAB X 1 /DAY
  12. METOPROLOL [Concomitant]
     Active Substance: METOPROLOL
     Dosage: 100 MG, 0.5 TAB X 2 /DAY
  13. MAGNESIUM OXIDE [Concomitant]
     Active Substance: MAGNESIUM OXIDE
     Dosage: 520 MG, 1 TAB X 1 /DAY
  14. LERCANIDIPINE [Interacting]
     Active Substance: LERCANIDIPINE
     Dosage: 10 MG, 1 TAB X 1 /DAY
  15. INSULIN NOS [Concomitant]
     Active Substance: INSULIN NOS
     Dosage: BASAL-BOLUS PROTOCOL
     Route: 058

REACTIONS (5)
  - Transplant rejection [Unknown]
  - Toxicity to various agents [Recovering/Resolving]
  - Neuropsychological symptoms [Recovering/Resolving]
  - Drug ineffective [Unknown]
  - Drug interaction [Unknown]
